FAERS Safety Report 6979136-7 (Version None)
Quarter: 2010Q3

REPORT INFORMATION
  Report Type: 
  Country: None (occurrence: None)
  Receive Date: 20100913
  Receipt Date: 20100907
  Transmission Date: 20110219
  Serious: Yes (Death, Other)
  Sender: FDA-Public Use
  Company Number: PHHY2010JP59525

PATIENT
  Age: 83 Year
  Sex: Female

DRUGS (2)
  1. IMATINIB [Suspect]
     Dosage: 100 MG DAILY
  2. STEROIDS NOS [Concomitant]
     Dosage: UNK

REACTIONS (4)
  - DISSEMINATED INTRAVASCULAR COAGULATION [None]
  - PULMONARY ALVEOLAR HAEMORRHAGE [None]
  - RENAL FAILURE ACUTE [None]
  - TUMOUR LYSIS SYNDROME [None]
